FAERS Safety Report 16928865 (Version 1)
Quarter: 2019Q4

REPORT INFORMATION
  Report Type: Spontaneous
  Country: DE (occurrence: DE)
  Receive Date: 20191017
  Receipt Date: 20191017
  Transmission Date: 20200122
  Serious: Yes (Hospitalization)
  Sender: FDA-Public Use
  Company Number: DE-AUROBINDO-AUR-APL-2019-067272

PATIENT
  Age: 17 Year
  Sex: Female
  Weight: 81 kg

DRUGS (1)
  1. BISOPROLOL [Suspect]
     Active Substance: BISOPROLOL
     Indication: PRODUCT USED FOR UNKNOWN INDICATION
     Dosage: 200 MILLIGRAM, EVERY TOTAL 20 SEPARATED DOSES
     Route: 048
     Dates: start: 20181202, end: 20181202

REACTIONS (2)
  - Toxicity to various agents [Unknown]
  - Intentional overdose [Unknown]

NARRATIVE: CASE EVENT DATE: 20181204
